FAERS Safety Report 6549836-1 (Version None)
Quarter: 2010Q1

REPORT INFORMATION
  Report Type: 
  Country: None (occurrence: None)
  Receive Date: 20100119
  Receipt Date: 20100104
  Transmission Date: 20100710
  Serious: Yes (Hospitalization)
  Sender: FDA-Public Use
  Company Number: 2010000114

PATIENT
  Age: 47 Year
  Sex: Female
  Weight: 58 kg

DRUGS (3)
  1. TREANDA [Suspect]
     Indication: ADULT T-CELL LYMPHOMA/LEUKAEMIA
     Dosage: (200 MG,CYCLICAL),INTRAVENOUS ; (198 MG,CYCLICAL),INTRAVENOUS
     Route: 042
     Dates: start: 20090930, end: 20091001
  2. TREANDA [Suspect]
     Indication: ADULT T-CELL LYMPHOMA/LEUKAEMIA
     Dosage: (200 MG,CYCLICAL),INTRAVENOUS ; (198 MG,CYCLICAL),INTRAVENOUS
     Route: 042
     Dates: start: 20091021, end: 20091022
  3. ONDANSETRON(ONDANSETRON) (TABLET) [Concomitant]

REACTIONS (12)
  - BLOOD ALKALINE PHOSPHATASE INCREASED [None]
  - BLOOD CALCIUM DECREASED [None]
  - BLOOD CREATININE DECREASED [None]
  - BLOOD SODIUM DECREASED [None]
  - BURNING SENSATION [None]
  - DYSURIA [None]
  - GAMMA-GLUTAMYLTRANSFERASE INCREASED [None]
  - HAEMOPTYSIS [None]
  - INTERSTITIAL LUNG DISEASE [None]
  - LUNG CONSOLIDATION [None]
  - RASH MACULO-PAPULAR [None]
  - WHITE BLOOD CELLS URINE POSITIVE [None]
